FAERS Safety Report 25892310 (Version 1)
Quarter: 2025Q4

REPORT INFORMATION
  Report Type: Spontaneous
  Country: CH (occurrence: CH)
  Receive Date: 20251007
  Receipt Date: 20251007
  Transmission Date: 20260118
  Serious: Yes (Hospitalization, Other)
  Sender: SANDOZ
  Company Number: CH-MLMSERVICE-20170824-0861996-1

PATIENT
  Age: 29 Year
  Sex: Male

DRUGS (6)
  1. BASILIXIMAB [Suspect]
     Active Substance: BASILIXIMAB
     Indication: Immunosuppressant drug therapy
     Dosage: 20 MG, UNK (ON DAY 0)
     Route: 065
  2. BASILIXIMAB [Suspect]
     Active Substance: BASILIXIMAB
     Dosage: 20 MG, UNK (ON DAY 4)
     Route: 065
  3. MYCOPHENOLATE MOFETIL [Suspect]
     Active Substance: MYCOPHENOLATE MOFETIL
     Indication: Immunosuppressant drug therapy
     Dosage: 2 G, QD (MAINTENANCE DOSE)
     Route: 065
  4. PREDNISOLONE [Suspect]
     Active Substance: PREDNISOLONE
     Dosage: 5 MG, QD (MAINTENANCE DOSE)
     Route: 065
  5. PREDNISOLONE [Suspect]
     Active Substance: PREDNISOLONE
     Indication: Immunosuppressant drug therapy
     Dosage: 500 MG, UNK (THREE BOLUSES OF 500 MG INTRAVENOUSLY)
     Route: 040
  6. TACROLIMUS [Suspect]
     Active Substance: TACROLIMUS
     Indication: Immunosuppressant drug therapy
     Dosage: UNK UKN, UNK ( (TARGET TROUGH LEVEL OF 10 NG/ML)
     Route: 065

REACTIONS (3)
  - Cryptococcosis [Recovered/Resolved]
  - Meningitis cryptococcal [Recovered/Resolved]
  - Fungaemia [Recovered/Resolved]
